FAERS Safety Report 24760244 (Version 3)
Quarter: 2025Q2

REPORT INFORMATION
  Report Type: Spontaneous
  Country: US (occurrence: US)
  Receive Date: 20241220
  Receipt Date: 20250410
  Transmission Date: 20250716
  Serious: No
  Sender: SANOFI AVENTIS
  Company Number: US-SA-2024SA375497

PATIENT
  Age: 3 Year
  Sex: Male

DRUGS (1)
  1. DUPIXENT [Suspect]
     Active Substance: DUPILUMAB
     Indication: Dermatitis atopic
     Dosage: 300 MG, Q4W
     Dates: start: 202408

REACTIONS (4)
  - Skin swelling [Unknown]
  - Dry skin [Unknown]
  - Pyrexia [Not Recovered/Not Resolved]
  - Dental operation [Unknown]

NARRATIVE: CASE EVENT DATE: 20240101
